FAERS Safety Report 12283762 (Version 1)
Quarter: 2016Q2

REPORT INFORMATION
  Report Type: Spontaneous
  Country: US (occurrence: US)
  Receive Date: 20160419
  Receipt Date: 20160419
  Transmission Date: 20160815
  Serious: No
  Sender: FDA-Public Use
  Company Number: US-BANPHARM-20154086

PATIENT
  Age: 57 Year
  Sex: Female
  Weight: 68.04 kg

DRUGS (3)
  1. INSULIN [Concomitant]
     Active Substance: INSULIN NOS
  2. ALEVE [Suspect]
     Active Substance: NAPROXEN SODIUM
     Indication: PAIN IN EXTREMITY
     Dosage: 2 DF, PRN,
     Route: 048
     Dates: start: 20150715, end: 20150722
  3. GENERIC MULTIVITAMIN [Concomitant]

REACTIONS (3)
  - Pain [Unknown]
  - Product use issue [Unknown]
  - Drug ineffective [Unknown]
